FAERS Safety Report 20552406 (Version 1)
Quarter: 2022Q1

REPORT INFORMATION
  Report Type: Spontaneous
  Country: RU (occurrence: RU)
  Receive Date: 20220304
  Receipt Date: 20220304
  Transmission Date: 20220423
  Serious: Yes (Other)
  Sender: FDA-Public Use
  Company Number: RU-NEBO-PC008073

PATIENT
  Age: 22 Year
  Sex: Female
  Weight: 61 kg

DRUGS (5)
  1. IRON ISOMALTOSIDE 1000 [Suspect]
     Active Substance: IRON ISOMALTOSIDE 1000
     Indication: Iron deficiency anaemia
     Route: 042
     Dates: start: 20220222, end: 20220222
  2. FERRUM LEK [FERRIC HYDROXIDE POLYMALTOSE COMP [Concomitant]
     Indication: Iron deficiency anaemia
     Dates: start: 20211203, end: 20220222
  3. WARFARIN [Concomitant]
     Active Substance: WARFARIN
     Indication: Thrombosis prophylaxis
     Dates: end: 20220215
  4. NOVORAPID [Concomitant]
     Active Substance: INSULIN ASPART
     Indication: Gestational diabetes
     Dates: start: 20211215
  5. NADROPARIN CALCIUM [Concomitant]
     Active Substance: NADROPARIN CALCIUM
     Indication: Thrombosis prophylaxis
     Dates: start: 20220216

REACTIONS (3)
  - Hypersensitivity [Not Recovered/Not Resolved]
  - Proteinuria [Not Recovered/Not Resolved]
  - Maternal exposure during pregnancy [Unknown]

NARRATIVE: CASE EVENT DATE: 20220222
